FAERS Safety Report 8778852 (Version 3)
Quarter: 2012Q4

REPORT INFORMATION
  Report Type: 
  Country: US (occurrence: US)
  Receive Date: 20120912
  Receipt Date: 20120917
  Transmission Date: 20130627
  Serious: Yes (Hospitalization, Other)
  Sender: FDA-Public Use
  Company Number: PHEH2011US011597

PATIENT
  Age: 52 None
  Sex: Female

DRUGS (7)
  1. GILENYA [Suspect]
     Indication: MULTIPLE SCLEROSIS
     Dosage: 0.5 mg, QD
     Route: 048
     Dates: start: 201112
  2. BACLOFEN [Concomitant]
     Indication: MUSCLE SPASTICITY
  3. MAXALT [Concomitant]
     Indication: MIGRAINE
  4. TOPAMAX [Concomitant]
     Indication: MIGRAINE
  5. TIZANIDINE [Concomitant]
     Indication: MIGRAINE
  6. CELEXA [Concomitant]
  7. EFFEXOR [Concomitant]

REACTIONS (6)
  - Multiple sclerosis relapse [Recovered/Resolved]
  - Convulsion [Recovered/Resolved]
  - Abdominal pain upper [Recovered/Resolved]
  - Influenza like illness [Unknown]
  - Urinary tract infection [Recovered/Resolved]
  - Back pain [Unknown]
